FAERS Safety Report 6481355-3 (Version None)
Quarter: 2009Q4

REPORT INFORMATION
  Report Type: 
  Country: None (occurrence: None)
  Receive Date: 20091208
  Receipt Date: 20091201
  Transmission Date: 20100525
  Serious: Yes (Other)
  Sender: FDA-Public Use
  Company Number: D0065064A

PATIENT

DRUGS (2)
  1. TYVERB [Suspect]
     Route: 065
  2. CAPECITABINE [Suspect]
     Route: 065

REACTIONS (1)
  - DEAFNESS [None]
